FAERS Safety Report 23569230 (Version 1)
Quarter: 2024Q1

REPORT INFORMATION
  Report Type: Report from Study
  Country: MX (occurrence: MX)
  Receive Date: 20240227
  Receipt Date: 20240227
  Transmission Date: 20240410
  Serious: Yes (Hospitalization)
  Sender: FDA-Public Use
  Company Number: MX-AMGEN-MEXSL2024036981

PATIENT
  Age: 53 Year
  Sex: Female

DRUGS (1)
  1. VECTIBIX [Suspect]
     Active Substance: PANITUMUMAB
     Indication: Colon cancer
     Dosage: 560 MILLIGRAM, Q2WK
     Route: 065
     Dates: start: 20230728

REACTIONS (5)
  - Renal failure [Unknown]
  - Skin infection [Unknown]
  - Mobility decreased [Unknown]
  - Urinary tract infection [Unknown]
  - Skin ulcer [Unknown]

NARRATIVE: CASE EVENT DATE: 20230101
